FAERS Safety Report 13472844 (Version 1)
Quarter: 2017Q2

REPORT INFORMATION
  Report Type: Spontaneous
  Country: US (occurrence: US)
  Receive Date: 20170424
  Receipt Date: 20170424
  Transmission Date: 20170830
  Serious: Yes (Life-Threatening, Disabling)
  Sender: FDA-Public Use
  Company Number: None

PATIENT
  Age: 71 Year
  Sex: Male
  Weight: 65.7 kg

DRUGS (1)
  1. FLUOXETINE [Suspect]
     Active Substance: FLUOXETINE HYDROCHLORIDE
     Indication: OBSESSIVE-COMPULSIVE DISORDER
     Dosage: ?          QUANTITY:1.5 TABLET(S);?
     Route: 048
     Dates: start: 20170419, end: 20170423

REACTIONS (7)
  - Dizziness [None]
  - Product substitution issue [None]
  - Intentional product use issue [None]
  - Malaise [None]
  - Feeling abnormal [None]
  - Nausea [None]
  - Drug effect increased [None]

NARRATIVE: CASE EVENT DATE: 20170419
